FAERS Safety Report 25091072 (Version 2)
Quarter: 2025Q2

REPORT INFORMATION
  Report Type: Report from Study
  Country: US (occurrence: US)
  Receive Date: 20250318
  Receipt Date: 20250402
  Transmission Date: 20250717
  Serious: No
  Sender: AGIOS PHARMACEUTICALS
  Company Number: US-AGIOS-2503US04122

PATIENT
  Sex: Female

DRUGS (1)
  1. MITAPIVAT [Suspect]
     Active Substance: MITAPIVAT
     Indication: Autoimmune haemolytic anaemia
     Route: 065
     Dates: start: 20250215

REACTIONS (3)
  - Nausea [Unknown]
  - Brain fog [Unknown]
  - Off label use [Unknown]
